FAERS Safety Report 4934057-6 (Version None)
Quarter: 2006Q1

REPORT INFORMATION
  Report Type: 
  Country: None (occurrence: None)
  Receive Date: 20060303
  Receipt Date: 20060219
  Transmission Date: 20060701
  Serious: Yes (Other)
  Sender: FDA-Public Use
  Company Number: 2006024299

PATIENT
  Age: 2 Year
  Sex: Male
  Weight: 13.6079 kg

DRUGS (1)
  1. CHILDREN'S PEDIACARE MULTI-SYMPTOM COLD (PSEUDOEPHEDRINE,  DEXTROMETHO [Suspect]
     Indication: ACCIDENTAL EXPOSURE
     Dosage: 2 TABLESPOONS ONCE, ORAL
     Route: 048
     Dates: start: 20060219, end: 20060219

REACTIONS (2)
  - ACCIDENTAL DRUG INTAKE BY CHILD [None]
  - PSYCHOMOTOR HYPERACTIVITY [None]
